FAERS Safety Report 21761595 (Version 2)
Quarter: 2022Q4

REPORT INFORMATION
  Report Type: Spontaneous
  Country: US (occurrence: US)
  Receive Date: 20221221
  Receipt Date: 20221227
  Transmission Date: 20230112
  Serious: No
  Sender: FDA-Public Use
  Company Number: US-PFIZER INC-202201384802

PATIENT
  Age: 79 Year
  Sex: Female
  Weight: 93.44 kg

DRUGS (2)
  1. NIFEDIPINE [Suspect]
     Active Substance: NIFEDIPINE
     Indication: Prinzmetal angina
     Dosage: 60 MG, 1X/DAY (AT NIGHT)
     Route: 048
     Dates: end: 202212
  2. ACETYLCYSTEINE [Concomitant]
     Active Substance: ACETYLCYSTEINE
     Dosage: 6 MG, 1X/DAY
     Dates: start: 20221217

REACTIONS (2)
  - Presyncope [Unknown]
  - Blood pressure decreased [Not Recovered/Not Resolved]

NARRATIVE: CASE EVENT DATE: 20221201
